FAERS Safety Report 11720887 (Version 2)
Quarter: 2016Q3

REPORT INFORMATION
  Report Type: Spontaneous
  Country: US (occurrence: US)
  Receive Date: 20151110
  Receipt Date: 20160809
  Transmission Date: 20161109
  Serious: No
  Sender: FDA-Public Use
  Company Number: US-SA-2015SA126539

PATIENT
  Age: 70 Year
  Sex: Female
  Weight: 88.45 kg

DRUGS (21)
  1. VITAMIN B12 [Concomitant]
     Active Substance: CYANOCOBALAMIN
     Route: 048
  2. EVENING PRIMROSE OIL [Concomitant]
     Active Substance: EVENING PRIMROSE OIL
     Route: 048
  3. CYMBALTA [Concomitant]
     Active Substance: DULOXETINE HYDROCHLORIDE
     Route: 048
  4. SINGULAIR [Concomitant]
     Active Substance: MONTELUKAST SODIUM
     Dosage: IN EVENING
     Route: 048
  5. ALIROCUMAB PREFILLED PEN [Concomitant]
     Active Substance: ALIROCUMAB
     Dates: start: 20150729
  6. ASPIR-81 [Concomitant]
     Active Substance: ASPIRIN
     Route: 048
  7. CHROMIUM PICOLINATE [Concomitant]
     Active Substance: CHROMIUM PICOLINATE
     Route: 048
  8. WELCHOL [Concomitant]
     Active Substance: COLESEVELAM HYDROCHLORIDE
     Dosage: TAKE 6 TABLET BY ORAL ROUTE EVERY DAY WITH A MEAL AND UQUID
     Route: 048
  9. BENADRYL [Concomitant]
     Active Substance: DIPHENHYDRAMINE HYDROCHLORIDE
     Route: 048
  10. LUTEIN/ZEAXANTHIN [Concomitant]
     Route: 048
  11. BIOTIN [Concomitant]
     Active Substance: BIOTIN
     Route: 048
  12. VITAMIN D3 [Concomitant]
     Active Substance: CHOLECALCIFEROL
     Route: 048
  13. COQ [Concomitant]
     Route: 048
  14. QNASL [Concomitant]
     Active Substance: BECLOMETHASONE DIPROPIONATE
     Dosage: NASAL AEROSOL SPRAY,?SPRAY 2 SPRAY BY INTRANASAL ROUTE EVERY DAY IN EACH NOSTRIL
  15. CALCIUM [Concomitant]
     Active Substance: CALCIUM
     Route: 048
  16. NUVIGIL [Concomitant]
     Active Substance: ARMODAFINIL
  17. PRALUENT [Suspect]
     Active Substance: ALIROCUMAB
     Route: 065
     Dates: start: 20150728
  18. VITAMIN C [Concomitant]
     Active Substance: ASCORBIC ACID
     Route: 048
  19. OMEGA 3 [Concomitant]
     Active Substance: OMEGA-3 FATTY ACIDS
     Route: 048
  20. MAGNESIUM [Concomitant]
     Active Substance: MAGNESIUM
     Dosage: EVERY EVENING
     Route: 048
  21. VOLTAREN [Concomitant]
     Active Substance: DICLOFENAC SODIUM
     Dosage: APPLY (2G) BY TOPICAL ROUTE 4 TIMES EVERY DAY TO THE AFFECTED AREA
     Route: 061

REACTIONS (1)
  - Blood triglycerides increased [Not Recovered/Not Resolved]

NARRATIVE: CASE EVENT DATE: 20150812
